FAERS Safety Report 9146264 (Version 3)
Quarter: 2013Q2

REPORT INFORMATION
  Report Type: Spontaneous
  Country: US (occurrence: US)
  Receive Date: 20130307
  Receipt Date: 20130416
  Transmission Date: 20140414
  Serious: Yes (Hospitalization, Other)
  Sender: FDA-Public Use
  Company Number: US-PFIZER INC-2013076385

PATIENT
  Age: 53 Year
  Sex: Female

DRUGS (4)
  1. LYRICA [Suspect]
     Dosage: UNK
  2. GEODON [Suspect]
     Dosage: UNK
  3. ZOLOFT [Suspect]
     Dosage: UNK
  4. LAMICTAL [Concomitant]
     Dosage: UNK

REACTIONS (7)
  - Bipolar disorder [Unknown]
  - Obsessive-compulsive disorder [Unknown]
  - Depression [Unknown]
  - Suicidal ideation [Unknown]
  - Anxiety [Unknown]
  - Irritability [Unknown]
  - Disturbance in attention [Unknown]
